FAERS Safety Report 18524626 (Version 1)
Quarter: 2020Q4

REPORT INFORMATION
  Report Type: Spontaneous
  Country: US (occurrence: US)
  Receive Date: 20201119
  Receipt Date: 20201119
  Transmission Date: 20210114
  Serious: No
  Sender: FDA-Public Use
  Company Number: NVSC2020US306381

PATIENT
  Age: 68 Year
  Sex: Female

DRUGS (1)
  1. PIQRAY [Suspect]
     Active Substance: ALPELISIB
     Indication: PRODUCT USED FOR UNKNOWN INDICATION
     Dosage: 150 MG, BID
     Route: 065
     Dates: start: 20201106, end: 20201115

REACTIONS (5)
  - Arthralgia [Unknown]
  - Pain [Unknown]
  - Diarrhoea [Unknown]
  - Decreased appetite [Unknown]
  - Feeding disorder [Unknown]

NARRATIVE: CASE EVENT DATE: 20201107
